FAERS Safety Report 6973301-0 (Version None)
Quarter: 2010Q3

REPORT INFORMATION
  Report Type: 
  Country: None (occurrence: None)
  Receive Date: 20100909
  Receipt Date: 20100908
  Transmission Date: 20110219
  Serious: Yes (Death)
  Sender: FDA-Public Use
  Company Number: PHHY2010TW59212

PATIENT
  Age: 87 Year
  Sex: Female

DRUGS (1)
  1. ZOLEDRONIC [Suspect]
     Indication: OSTEOPOROSIS POSTMENOPAUSAL
     Dosage: 5 MG/100 ML ONCE PER YEAR
     Route: 042
     Dates: start: 20100323

REACTIONS (1)
  - DEATH [None]
